FAERS Safety Report 12454831 (Version 2)
Quarter: 2025Q3

REPORT INFORMATION
  Report Type: Spontaneous
  Country: US (occurrence: US)
  Receive Date: 20160610
  Receipt Date: 20250708
  Transmission Date: 20251021
  Serious: Yes (Death, Other)
  Sender: PURDUE
  Company Number: US-NAPPMUNDI-USA-2007-0026772

PATIENT
  Age: 33 Year
  Sex: Male

DRUGS (2)
  1. MORPHINE SULFATE [Suspect]
     Active Substance: MORPHINE SULFATE
     Indication: Drug abuser
     Route: 048
  2. COCAINE [Suspect]
     Active Substance: COCAINE
     Indication: Drug abuse
     Route: 048

REACTIONS (3)
  - Overdose [Fatal]
  - Cardiac disorder [Fatal]
  - Substance abuse [Fatal]

NARRATIVE: CASE EVENT DATE: 19971201
